FAERS Safety Report 6753601-X (Version None)
Quarter: 2010Q2

REPORT INFORMATION
  Report Type: 
  Country: None (occurrence: None)
  Receive Date: 20100601
  Receipt Date: 20100524
  Transmission Date: 20101027
  Serious: Yes (Other)
  Sender: FDA-Public Use
  Company Number: 20108830

PATIENT
  Age: 28 Year
  Sex: Male

DRUGS (1)
  1. LIORESAL [Suspect]
     Indication: MUSCLE SPASTICITY
     Dosage: MCG, DAILY, INTRATHECAL
     Route: 037

REACTIONS (6)
  - DEVICE MATERIAL ISSUE [None]
  - FEELING OF RELAXATION [None]
  - HYPERSOMNIA [None]
  - IMPLANT SITE SWELLING [None]
  - MUSCLE SPASTICITY [None]
  - SOMNOLENCE [None]
